FAERS Safety Report 10537317 (Version 2)
Quarter: 2014Q4

REPORT INFORMATION
  Report Type: Spontaneous
  Country: US (occurrence: US)
  Receive Date: 20141023
  Receipt Date: 20141112
  Transmission Date: 20150529
  Serious: Yes (Hospitalization, Other)
  Sender: FDA-Public Use
  Company Number: US-BIOGENIDEC-2014BI109721

PATIENT
  Age: 48 Year
  Sex: Female

DRUGS (1)
  1. AVONEX [Suspect]
     Active Substance: INTERFERON BETA-1A
     Indication: MULTIPLE SCLEROSIS
     Route: 030
     Dates: start: 20010119, end: 20130513

REACTIONS (3)
  - Diabetes mellitus [Unknown]
  - Immunodeficiency [Recovered/Resolved]
  - Pulmonary sepsis [Recovered/Resolved with Sequelae]

NARRATIVE: CASE EVENT DATE: 20130513
